FAERS Safety Report 25130175 (Version 1)
Quarter: 2025Q1

REPORT INFORMATION
  Report Type: Spontaneous
  Country: US (occurrence: None)
  Receive Date: 20250326
  Receipt Date: 20250326
  Transmission Date: 20250409
  Serious: Yes (Death)
  Sender: FDA-CTU
  Company Number: None

PATIENT
  Sex: Male
  Weight: 83.8 kg

DRUGS (11)
  1. SUTENT [Suspect]
     Active Substance: SUNITINIB MALATE
     Indication: Soft tissue sarcoma
     Dosage: 50 MG DAILY ORAL?
     Route: 048
     Dates: start: 20241114, end: 20250225
  2. SUTENT [Suspect]
     Active Substance: SUNITINIB MALATE
     Indication: Malignant connective tissue neoplasm
  3. methadone 10mg tablet [Concomitant]
  4. zolpidem ER 12.5mg Tablet [Concomitant]
  5. diphenhydramine 25mg capsule [Concomitant]
  6. dronabinol 2.5mg capsule [Concomitant]
  7. DULOXETINE [Concomitant]
     Active Substance: DULOXETINE
  8. ondansetron 8mg tablet [Concomitant]
  9. promethazine 12.5mg tablet [Concomitant]
  10. Opdivo injection [Concomitant]
  11. sulfamethoxazole/trimethoprim 800-160mg Tablet [Concomitant]

REACTIONS (3)
  - Soft tissue sarcoma [None]
  - Malignant connective tissue neoplasm [None]
  - Malignant neoplasm progression [None]
